FAERS Safety Report 10075919 (Version 1)
Quarter: 2014Q1

REPORT INFORMATION
  Report Type: Spontaneous
  Country: US (occurrence: None)
  Receive Date: 20140321
  Receipt Date: 20140321
  Transmission Date: 20141002
  Serious: Yes (Other)
  Sender: FDA-Public Use
  Company Number: 2014SA006206

PATIENT
  Age: 37 Year
  Sex: Female

DRUGS (1)
  1. AUBAGIO [Suspect]
     Indication: MULTIPLE SCLEROSIS
     Route: 048
     Dates: start: 20131127

REACTIONS (8)
  - Central nervous system lesion [None]
  - Visual acuity reduced [None]
  - Condition aggravated [None]
  - Optic nerve disorder [None]
  - Gait disturbance [None]
  - Paraesthesia [None]
  - Hypoaesthesia [None]
  - Paraesthesia [None]
